FAERS Safety Report 4374241-6 (Version None)
Quarter: 2004Q2

REPORT INFORMATION
  Report Type: 
  Country: None (occurrence: None)
  Receive Date: 20040603
  Receipt Date: 20040521
  Transmission Date: 20050107
  Serious: Yes (Hospitalization)
  Sender: FDA-Public Use
  Company Number: 2004030575

PATIENT
  Age: 86 Year
  Sex: Male
  Weight: 65 kg

DRUGS (20)
  1. LIPITOR [Suspect]
     Indication: HYPERLIPIDAEMIA
     Dosage: 10 MG (1 IN 1 D), ORAL
     Route: 048
     Dates: start: 20040308, end: 20040424
  2. SULTAMICILLIN TOSILATE (SULTAMICILLIN TOSILATE) [Concomitant]
  3. TEPRENONE (TEPRENONE) [Concomitant]
  4. MAGNESIUM OXIDE (MAGNESIUM OXIDE) [Concomitant]
  5. TICLOPIDINE HCL [Concomitant]
  6. BUFFERIN [Concomitant]
  7. BISOPROLOL FUMARATE [Concomitant]
  8. PERINCOPRIL (PERINDOPRIL) [Concomitant]
  9. ENALAPRIL MALEATE [Concomitant]
  10. EVIPROSTAT (CHIMAPHILA UMBELLATA, EQUISETUM ARVENSE, MANGANESE CHLORID [Concomitant]
  11. ETIZOLAM (ETIZOLAM) [Concomitant]
  12. DEXCHLORPHENIRAMINE MALEATE (DEXCHLORPHENIRAMINE MALEATE) [Concomitant]
  13. ALOSENN (ACHILLEA, RUBIA ROOT TINCTURE, SENNA FRUIT, SENNA LEAF, TARAX [Concomitant]
  14. VALSARTAN (VALSARTAN) [Concomitant]
  15. CIMETIDINE (COMETIDINE) [Concomitant]
  16. DOMPERIDONE (DOMPERIDONE) [Concomitant]
  17. FLAVOXATE HYDROCHLORIDE (FLAVOXATE HYDROCHLORIDE) [Concomitant]
  18. FUROSEMIDE [Concomitant]
  19. ALLOPURINOL [Concomitant]
  20. ANTIPSYCHOTICS (ANTIPSYCHOTICS) [Concomitant]

REACTIONS (7)
  - ACUTE MYOCARDIAL INFARCTION [None]
  - ALANINE AMINOTRANSFERASE INCREASED [None]
  - ASPARTATE AMINOTRANSFERASE INCREASED [None]
  - BLOOD CREATINE PHOSPHOKINASE INCREASED [None]
  - DEPRESSED LEVEL OF CONSCIOUSNESS [None]
  - NEUROLEPTIC MALIGNANT SYNDROME [None]
  - URINE ABNORMALITY [None]
